FAERS Safety Report 5960417-0 (Version None)
Quarter: 2008Q4

REPORT INFORMATION
  Report Type: 
  Country: None (occurrence: None)
  Receive Date: 20081120
  Receipt Date: 20081107
  Transmission Date: 20090506
  Serious: No
  Sender: FDA-Public Use
  Company Number: US-ELI_LILLY_AND_COMPANY-US200810001542

PATIENT
  Age: 55 Year
  Sex: Female

DRUGS (6)
  1. CYMBALTA [Suspect]
     Indication: ANXIETY DISORDER
     Dosage: 60 MG, UNK
     Dates: start: 20060101
  2. CYMBALTA [Suspect]
     Dosage: 60 MG, QOD
  3. CYMBALTA [Suspect]
     Dosage: 30 MG, UNK
     Dates: end: 20080901
  4. LIPITOR [Concomitant]
  5. SYNTHROID [Concomitant]
     Dates: start: 20080501
  6. MOTRIN [Concomitant]

REACTIONS (5)
  - EMOTIONAL DISORDER [None]
  - HEADACHE [None]
  - PARAESTHESIA [None]
  - TEARFULNESS [None]
  - WITHDRAWAL SYNDROME [None]
